FAERS Safety Report 8325473-3 (Version None)
Quarter: 2012Q2

REPORT INFORMATION
  Report Type: 
  Country: None (occurrence: None)
  Receive Date: 20120501
  Receipt Date: 20120425
  Transmission Date: 20120825
  Serious: Yes (Other)
  Sender: FDA-Public Use
  Company Number: US-PFIZER INC-2012105189

PATIENT
  Sex: Female

DRUGS (1)
  1. CHANTIX [Suspect]
     Dosage: UNK
     Dates: start: 20070801

REACTIONS (5)
  - PSYCHOTIC DISORDER [None]
  - DEPRESSION [None]
  - INSOMNIA [None]
  - ANXIETY [None]
  - SUICIDAL IDEATION [None]
